FAERS Safety Report 8834497 (Version 1)
Quarter: 2012Q4

REPORT INFORMATION
  Report Type: 
  Country: ES (occurrence: ES)
  Receive Date: 20121010
  Receipt Date: 20121010
  Transmission Date: 20130627
  Serious: Yes (Other)
  Sender: FDA-Public Use
  Company Number: ES-ARROW-2012-17058

PATIENT
  Age: 62 Year
  Sex: Female

DRUGS (4)
  1. BUDESONIDE [Suspect]
     Indication: INFLUENZA
     Dosage: Q 12 hours
     Route: 065
  2. IPRATROPIUM [Suspect]
     Indication: INFLUENZA
     Dosage: UNK
     Route: 065
  3. TERBUTALINE [Suspect]
     Indication: INFLUENZA
     Dosage: Q 12 hours
     Route: 065
  4. OSELTAMIVIR [Suspect]
     Indication: INFLUENZA
     Dosage: UNK
     Route: 048

REACTIONS (11)
  - Psychiatric symptom [Recovered/Resolved]
  - Psychomotor hyperactivity [Recovered/Resolved]
  - Delusion [Recovered/Resolved]
  - Abnormal behaviour [Recovered/Resolved]
  - Speech disorder [Recovered/Resolved]
  - Flat affect [Recovered/Resolved with Sequelae]
  - Confusional state [None]
  - No therapeutic response [None]
  - Cerebral hypoperfusion [None]
  - Cerebral ischaemia [None]
  - Emotional disorder [None]
